FAERS Safety Report 23861173 (Version 1)
Quarter: 2024Q2

REPORT INFORMATION
  Report Type: Spontaneous
  Country: US (occurrence: US)
  Receive Date: 20240516
  Receipt Date: 20240516
  Transmission Date: 20240716
  Serious: No
  Sender: FDA-Public Use
  Company Number: US-CHIESI-2024CHF01303

PATIENT
  Age: 68 Year
  Sex: Female
  Weight: 61.6 kg

DRUGS (30)
  1. ELFABRIO [Suspect]
     Active Substance: PEGUNIGALSIDASE ALFA-IWXJ
     Indication: Fabry^s disease
     Dosage: 60 MILLIGRAM, QOW
     Route: 042
     Dates: start: 20240304, end: 20240304
  2. ELFABRIO [Suspect]
     Active Substance: PEGUNIGALSIDASE ALFA-IWXJ
     Dosage: 60 MILLIGRAM
     Route: 042
     Dates: start: 20240314
  3. GAS-X [Concomitant]
     Active Substance: DIMETHICONE
     Indication: Flatulence
     Dosage: 1 DOSAGE FORM, PRN
     Route: 048
     Dates: start: 1993
  4. BEANO [Concomitant]
     Active Substance: ASPERGILLUS NIGER .ALPHA.-GALACTOSIDASE
     Indication: Flatulence
     Dosage: 1 DOSAGE FORM, PRN
     Route: 048
     Dates: start: 1993
  5. SYSTANE (HYPROMELLOSE 2910 (4000 MPA.S)) [Concomitant]
     Active Substance: HYPROMELLOSE 2910 (4000 MPA.S)
     Indication: Dry eye
     Dosage: 1 DROP, PRN
     Dates: start: 1994
  6. FLUOXETINE [Concomitant]
     Active Substance: FLUOXETINE HYDROCHLORIDE
     Indication: Depression
     Dosage: 10 MILLIGRAM, QD
     Route: 048
     Dates: start: 1996
  7. VICODIN [Concomitant]
     Active Substance: ACETAMINOPHEN\HYDROCODONE BITARTRATE
     Indication: Pain
     Dosage: 400 MILLIGRAM
     Route: 048
     Dates: start: 200907
  8. TRAMADOL [Concomitant]
     Active Substance: TRAMADOL\TRAMADOL HYDROCHLORIDE
     Indication: Pain
     Dosage: 50 MILLIGRAM
     Route: 048
     Dates: start: 2013
  9. BONINE [Concomitant]
     Active Substance: MECLIZINE HYDROCHLORIDE
     Indication: Vertigo
     Dosage: 25 MILLIGRAM, PRN
     Route: 048
     Dates: start: 2013
  10. VITAMIN D3 [Concomitant]
     Active Substance: CHOLECALCIFEROL
     Indication: Vitamin D deficiency
     Dosage: UNK, QD
     Route: 048
     Dates: start: 2014
  11. SYNTHROID [Concomitant]
     Active Substance: LEVOTHYROXINE SODIUM
     Indication: Hypothyroidism
     Dosage: 25 MILLIGRAM, QD
     Route: 048
     Dates: start: 20160203
  12. LIVALO [Concomitant]
     Active Substance: PITAVASTATIN CALCIUM
     Indication: Hyperlipidaemia
     Dosage: 4 MILLIGRAM, QD
     Route: 048
     Dates: start: 20160212
  13. ZETIA [Concomitant]
     Active Substance: EZETIMIBE
     Indication: Hyperlipidaemia
     Dosage: 10 MILLIGRAM, QD
     Route: 048
     Dates: start: 201604
  14. ACETAMINOPHEN [Concomitant]
     Active Substance: ACETAMINOPHEN
     Indication: Pain
     Dosage: 500 MILLIGRAM, QD
     Route: 048
     Dates: start: 2017
  15. ZYRTEC [Concomitant]
     Active Substance: CETIRIZINE HYDROCHLORIDE
     Indication: Seasonal allergy
     Dosage: 10 MILLIGRAM, PRN
     Route: 048
     Dates: start: 2018
  16. ALPHA LIPOIC ACID [Concomitant]
     Active Substance: .ALPHA.-LIPOIC ACID
     Indication: Neuropathy peripheral
     Dosage: 1500 MICROGRAM
     Route: 048
     Dates: start: 2018
  17. PLAVIX [Concomitant]
     Active Substance: CLOPIDOGREL BISULFATE
     Indication: Prophylaxis
     Dosage: 75 MILLIGRAM, QD
     Route: 048
     Dates: start: 20180417
  18. GABAPENTIN [Concomitant]
     Active Substance: GABAPENTIN
     Indication: Neuropathy peripheral
     Dosage: 10.9 MILLIGRAM, PRN
     Route: 048
     Dates: start: 20180417
  19. VITAMIN C [Concomitant]
     Active Substance: ASCORBIC ACID
     Indication: Supplementation therapy
     Dosage: 1000 MICROGRAM, QD
     Route: 048
     Dates: start: 2019
  20. ALKA-SELTZER [Concomitant]
     Active Substance: ANHYDROUS CITRIC ACID\ASPIRIN\SODIUM BICARBONATE
     Indication: Gastrooesophageal reflux disease
     Dosage: 1 DOSAGE FORM, PRN
     Route: 048
     Dates: start: 2020
  21. FAMOTIDINE [Concomitant]
     Active Substance: FAMOTIDINE
     Indication: Gastrooesophageal reflux disease
     Dosage: 40 MILLIGRAM, (1X)
     Route: 048
     Dates: start: 2020
  22. CALCIUM CARBONATE [Concomitant]
     Active Substance: CALCIUM CARBONATE
     Indication: Osteoporosis
     Dosage: 750 MILLIGRAM, QD
     Route: 048
     Dates: start: 202101
  23. LORAZEPAM [Concomitant]
     Active Substance: LORAZEPAM
     Indication: Anxiety
     Dosage: 0.5 MILLIGRAM, PRN
     Route: 048
     Dates: start: 2021
  24. METOCLOPRAMIDE [Concomitant]
     Active Substance: METOCLOPRAMIDE
     Indication: Dyspepsia
     Dosage: 10 MILLIGRAM
     Route: 048
     Dates: start: 20180615
  25. ATACAND [Concomitant]
     Active Substance: CANDESARTAN CILEXETIL
     Indication: Hypertension
     Dosage: 4 MILLIGRAM, BID
     Route: 048
     Dates: start: 20220322
  26. VITAMIN B [Concomitant]
     Active Substance: VITAMIN B
     Indication: Supplementation therapy
     Dosage: UNK, QD
     Route: 061
     Dates: start: 20220617
  27. VENTOLIN HFA [Concomitant]
     Active Substance: ALBUTEROL SULFATE
     Indication: Bronchospasm
     Dosage: 2 DOSAGE FORM, PRN
     Dates: start: 20220618
  28. BIOTENE NOS [Concomitant]
     Active Substance: CETYLPYRIDINIUM CHLORIDE OR SODIUM FLUORIDE OR SODIUM MONOFLUOROPHOSPHATE OR GLUCOSE OXIDASE\LACTOFE
     Indication: Dry mouth
     Dosage: 1 DROP, PRN
     Route: 048
     Dates: start: 20221101
  29. XYLITOL [Concomitant]
     Active Substance: XYLITOL
     Indication: Dry mouth
     Dosage: 1 DOSAGE FORM, PRN
     Route: 048
     Dates: start: 20221101
  30. TEGRETOL [Concomitant]
     Active Substance: CARBAMAZEPINE
     Indication: Paraesthesia
     Dosage: 100 MILLIGRAM, QD
     Route: 048
     Dates: start: 20230627

REACTIONS (2)
  - Night sweats [Recovered/Resolved]
  - Inappropriate schedule of product administration [Recovered/Resolved]

NARRATIVE: CASE EVENT DATE: 20240301
